FAERS Safety Report 15423819 (Version 1)
Quarter: 2018Q3

REPORT INFORMATION
  Report Type: Report from Study
  Country: CN (occurrence: CN)
  Receive Date: 20180925
  Receipt Date: 20180925
  Transmission Date: 20181010
  Serious: Yes (Other)
  Sender: FDA-Public Use
  Company Number: CN-ROCHE-2188566

PATIENT

DRUGS (3)
  1. CARBOPLATIN. [Suspect]
     Active Substance: CARBOPLATIN
     Indication: OVARIAN CANCER
     Dosage: ON DAY 1
     Route: 042
  2. BEVACIZUMAB. [Suspect]
     Active Substance: BEVACIZUMAB
     Indication: OVARIAN CANCER
     Dosage: FIRST DAY OF CYCLES 2 THROUGH 6
     Route: 065
  3. PACLITAXEL. [Suspect]
     Active Substance: PACLITAXEL
     Indication: OVARIAN CANCER
     Dosage: ON DAYS 1, 8, AND 15 OF EVERY CYCLE
     Route: 065

REACTIONS (9)
  - Fatigue [Unknown]
  - Wound [Unknown]
  - Pain [Unknown]
  - Anaemia [Unknown]
  - Constipation [Unknown]
  - Febrile neutropenia [Unknown]
  - Neutropenia [Unknown]
  - Rash [Unknown]
  - Thrombocytopenia [Unknown]
